FAERS Safety Report 5895065-4 (Version None)
Quarter: 2008Q3

REPORT INFORMATION
  Report Type: 
  Country: None (occurrence: None)
  Receive Date: 20080922
  Receipt Date: 20080905
  Transmission Date: 20090109
  Serious: Yes (Hospitalization)
  Sender: FDA-Public Use
  Company Number: WAES 0808FRA00044

PATIENT
  Age: 76 Year
  Sex: Male

DRUGS (7)
  1. CAP VORINOSTAT [Suspect]
     Indication: MYELODYSPLASTIC SYNDROME
     Dosage: 400 MG/DAILY; PO
     Route: 048
     Dates: start: 20080813, end: 20080824
  2. CYTARABINE [Suspect]
     Indication: MYELODYSPLASTIC SYNDROME
     Dosage: 10 MG/DAILY; SC
     Route: 058
     Dates: start: 20080729, end: 20080812
  3. AMIODARONE HCL [Concomitant]
  4. DEFERASIROX [Concomitant]
  5. GLICLAZIDE [Concomitant]
  6. TAMSULOSIN HCL [Concomitant]
  7. TINZAPARIN SODIUM [Concomitant]

REACTIONS (1)
  - TRANSFUSION REACTION [None]
